FAERS Safety Report 9002999 (Version 1)
Quarter: 2013Q1

REPORT INFORMATION
  Report Type: Spontaneous
  Country: CN (occurrence: CN)
  Receive Date: 20130108
  Receipt Date: 20130108
  Transmission Date: 20140127
  Serious: Yes (Hospitalization)
  Sender: FDA-Public Use
  Company Number: CN-GILEAD-2013-0067241

PATIENT
  Age: 39 Year
  Sex: Female

DRUGS (3)
  1. VIREAD [Suspect]
     Indication: HIV INFECTION
     Dosage: 0.3 G, QD
     Route: 048
     Dates: start: 20111026
  2. EPIVIR [Concomitant]
     Indication: HIV INFECTION
     Dosage: 0.3 G, QD
     Route: 048
     Dates: start: 20080807
  3. NEVIRAPINE [Concomitant]
     Indication: HIV INFECTION
     Dosage: 0.2 G, QD
     Route: 048
     Dates: start: 20080807

REACTIONS (1)
  - Anaemia [Recovered/Resolved]
